FAERS Safety Report 4299866-8 (Version None)
Quarter: 2004Q1

REPORT INFORMATION
  Report Type: 
  Country: None (occurrence: None)
  Receive Date: 20040219
  Receipt Date: 20040219
  Transmission Date: 20041129
  Serious: Yes (Other)
  Sender: FDA-Public Use
  Company Number: None

PATIENT
  Sex: Male
  Weight: 53.0709 kg

DRUGS (2)
  1. PAROXETINE 30 MG GENERIC [Suspect]
     Indication: ANXIETY
     Dosage: 30 MG QD
  2. PAROXETINE 30 MG GENERIC [Suspect]
     Indication: DEPRESSION
     Dosage: 30 MG QD

REACTIONS (2)
  - ANXIETY [None]
  - PHARMACEUTICAL PRODUCT COMPLAINT [None]
